FAERS Safety Report 10052025 (Version 2)
Quarter: 2014Q2

REPORT INFORMATION
  Report Type: Report from Study
  Country: US (occurrence: US)
  Receive Date: 20140402
  Receipt Date: 20140402
  Transmission Date: 20141212
  Serious: Yes (Hospitalization, Other)
  Sender: FDA-Public Use
  Company Number: US-ROCHE-1331775

PATIENT
  Age: 49 Year
  Sex: Female
  Weight: 54.93 kg

DRUGS (3)
  1. HERCEPTIN [Suspect]
     Indication: BREAST CANCER
     Route: 042
     Dates: start: 201306
  2. HERCEPTIN [Suspect]
     Route: 042
     Dates: start: 20130620, end: 20140115
  3. SYNTHROID [Concomitant]
     Indication: THYROID DISORDER
     Dosage: SINCE 20 YEARS
     Route: 048

REACTIONS (13)
  - Gastroenteritis viral [Unknown]
  - Weight decreased [Unknown]
  - White blood cell count decreased [Unknown]
  - Urinary tract infection [Unknown]
  - Fatigue [Recovered/Resolved]
  - Diarrhoea [Recovering/Resolving]
  - Dehydration [Recovered/Resolved]
  - Gastrointestinal inflammation [Not Recovered/Not Resolved]
  - Asthenia [Unknown]
  - Vomiting [Unknown]
  - Candida infection [Recovered/Resolved]
  - Heart rate irregular [Recovering/Resolving]
  - Fungal infection [Recovered/Resolved]
